FAERS Safety Report 6004256-3 (Version None)
Quarter: 2008Q4

REPORT INFORMATION
  Report Type: 
  Country: None (occurrence: None)
  Receive Date: 20081216
  Receipt Date: 20081209
  Transmission Date: 20090506
  Serious: Yes (Other)
  Sender: FDA-Public Use
  Company Number: US-PFIZER INC-2008152287

PATIENT
  Sex: Female

DRUGS (1)
  1. AROMASIN [Suspect]
     Indication: BREAST CANCER FEMALE
     Dosage: 25 MG, 1X/DAY
     Route: 048
     Dates: start: 20070101

REACTIONS (7)
  - ARTHRALGIA [None]
  - ATROPHY [None]
  - BONE DENSITY DECREASED [None]
  - NEUROPATHY PERIPHERAL [None]
  - PAIN [None]
  - SLEEP DISORDER [None]
  - UTERINE HAEMORRHAGE [None]
